FAERS Safety Report 5924114-X (Version None)
Quarter: 2008Q4

REPORT INFORMATION
  Report Type: 
  Country: None (occurrence: None)
  Receive Date: 20081020
  Receipt Date: 20080909
  Transmission Date: 20090506
  Serious: Yes (Life-Threatening)
  Sender: FDA-Public Use
  Company Number: PHHY2008DE11600

PATIENT
  Sex: Male
  Weight: 94 kg

DRUGS (9)
  1. EXFORGE [Suspect]
     Indication: HYPERTENSION
     Dosage: 1 DF (10 MG AMLODIPINE/160 MG VALSARTAN),  BID
     Route: 048
     Dates: start: 20071216
  2. EXFORGE [Suspect]
     Dosage: 1 DF (10 MG AMLODIPINE/160 MG VALSARTAN), QD
     Route: 048
     Dates: start: 20080729
  3. SIMVA-HENNIG [Concomitant]
     Indication: LOW DENSITY LIPOPROTEIN
     Dosage: 20 MG /DAY
     Dates: start: 20071023
  4. NEBILET [Concomitant]
     Indication: HYPERTENSION
     Dosage: 1 DF, QD
     Dates: start: 20080125
  5. NEBIVOLOL HCL [Concomitant]
     Indication: HYPERTENSION
     Dosage: 5 MG
     Dates: start: 20080507
  6. ASS ^STADA^ [Concomitant]
     Indication: PLATELET AGGREGATION INHIBITION
     Dosage: 100 MG/DAY
     Route: 048
     Dates: start: 20071023
  7. PROVAS ^SCHWARZ^ [Concomitant]
     Indication: HYPERTENSION
     Dosage: 160 MG/DAY
     Route: 048
     Dates: start: 20080730
  8. MOXONIDINE [Concomitant]
     Dosage: 1 DF, QD
  9. POTASSIUM CHLORIDE [Concomitant]
     Dosage: 1 DF, QD

REACTIONS (2)
  - BLOOD POTASSIUM DECREASED [None]
  - URINE POTASSIUM INCREASED [None]
